FAERS Safety Report 9180178 (Version 1)
Quarter: 2012Q4

REPORT INFORMATION
  Report Type: 
  Country: US (occurrence: US)
  Receive Date: 20121029
  Receipt Date: 20121029
  Transmission Date: 20130627
  Serious: Yes (Other)
  Sender: FDA-Public Use
  Company Number: US-PFIZER INC-2012269460

PATIENT
  Age: 41 Year
  Sex: Male
  Weight: 101 kg

DRUGS (2)
  1. NITROSTAT [Suspect]
     Indication: CHEST PAIN
     Dosage: 0.4 mg, as needed
     Dates: start: 201010
  2. METFORMIN [Concomitant]
     Indication: DIABETES
     Dosage: 500 mg, 2x/day

REACTIONS (2)
  - Myocardial infarction [Unknown]
  - Ejection fraction abnormal [Not Recovered/Not Resolved]
